FAERS Safety Report 9665241 (Version 1)
Quarter: 2013Q4

REPORT INFORMATION
  Report Type: Spontaneous
  Country: US (occurrence: US)
  Receive Date: 20131103
  Receipt Date: 20131103
  Transmission Date: 20140711
  Serious: No
  Sender: FDA-Public Use
  Company Number: US-009507513-1310USA012418

PATIENT
  Sex: 0

DRUGS (1)
  1. PEGINTRON [Suspect]
     Dosage: 120 MICROGRAM, ONCE WEEKLY
     Dates: start: 201305

REACTIONS (3)
  - Drug dose omission [Unknown]
  - Product quality issue [Unknown]
  - No adverse event [Unknown]
